FAERS Safety Report 5906577-9 (Version None)
Quarter: 2008Q4

REPORT INFORMATION
  Report Type: 
  Country: None (occurrence: None)
  Receive Date: 20081002
  Receipt Date: 20080925
  Transmission Date: 20090506
  Serious: No
  Sender: FDA-Public Use
  Company Number: US-B.I. PHARMACEUTICALS,INC./RIDGEFIELD-2008-BP-14990BP

PATIENT
  Sex: Female

DRUGS (7)
  1. SPIRIVA [Suspect]
     Indication: CHRONIC OBSTRUCTIVE PULMONARY DISEASE
     Dosage: 18MCG
     Route: 055
     Dates: start: 20080922
  2. ALBUTEROL W/IPRATROPIUM [Concomitant]
     Indication: CHRONIC OBSTRUCTIVE PULMONARY DISEASE
     Route: 055
  3. PULMICORT-100 [Concomitant]
     Indication: CHRONIC OBSTRUCTIVE PULMONARY DISEASE
     Route: 055
  4. COREG [Concomitant]
     Indication: CARDIAC DISORDER
  5. LORAZEPAM [Concomitant]
     Indication: INSOMNIA
  6. LASIX [Concomitant]
     Indication: DIURETIC THERAPY
  7. SOMETHING TO DRY UP SECRETIONS [Concomitant]
     Indication: INCREASED UPPER AIRWAY SECRETION

REACTIONS (2)
  - DIZZINESS [None]
  - TACHYCARDIA [None]
